FAERS Safety Report 11030047 (Version 1)
Quarter: 2015Q2

REPORT INFORMATION
  Report Type: Spontaneous
  Country: US (occurrence: US)
  Receive Date: 20150415
  Receipt Date: 20150415
  Transmission Date: 20150821
  Serious: No
  Sender: FDA-Public Use
  Company Number: US-BIOGENIDEC-2015BI044488

PATIENT
  Age: 70 Year
  Sex: Female

DRUGS (9)
  1. TECFIDERA [Suspect]
     Active Substance: DIMETHYL FUMARATE
     Indication: MULTIPLE SCLEROSIS
     Route: 048
     Dates: start: 20140616
  2. CALCIUM 600 [Concomitant]
  3. OMEGA 3 [Concomitant]
     Active Substance: OMEGA-3 FATTY ACIDS
  4. VITAMIN B12 [Concomitant]
     Active Substance: CYANOCOBALAMIN
  5. NEXIUM [Concomitant]
     Active Substance: ESOMEPRAZOLE MAGNESIUM
  6. LYRICA [Concomitant]
     Active Substance: PREGABALIN
  7. CLONAZEPAM. [Concomitant]
     Active Substance: CLONAZEPAM
  8. CYCLOBENZAPRINE HCL [Concomitant]
     Active Substance: CYCLOBENZAPRINE HYDROCHLORIDE
  9. ASPIRIN. [Concomitant]
     Active Substance: ASPIRIN

REACTIONS (1)
  - Dysgeusia [Not Recovered/Not Resolved]
